FAERS Safety Report 7545486-9 (Version None)
Quarter: 2011Q2

REPORT INFORMATION
  Report Type: 
  Country: None (occurrence: None)
  Receive Date: 20110614
  Receipt Date: 20110524
  Transmission Date: 20111010
  Serious: Yes (Hospitalization, Other)
  Sender: FDA-Public Use
  Company Number: US-BAYER-201028520NA

PATIENT
  Age: 38 Year
  Sex: Female
  Weight: 70.295 kg

DRUGS (3)
  1. DILAUDID [Concomitant]
     Indication: PAIN
  2. YAZ [Suspect]
     Indication: ORAL CONTRACEPTION
  3. YAZ [Suspect]
     Indication: PREMENSTRUAL SYNDROME
     Route: 048
     Dates: start: 20080101

REACTIONS (1)
  - PULMONARY EMBOLISM [None]
